FAERS Safety Report 6910844-X (Version None)
Quarter: 2010Q3

REPORT INFORMATION
  Report Type: 
  Country: None (occurrence: None)
  Receive Date: 20100716
  Receipt Date: 20090727
  Transmission Date: 20110219
  Serious: Yes (Other)
  Sender: FDA-Public Use
  Company Number: 2009226948

PATIENT
  Age: 50 Year

DRUGS (1)
  1. CELEBREX [Suspect]

REACTIONS (1)
  - MYOCARDIAL INFARCTION [None]
